FAERS Safety Report 20509369 (Version 1)
Quarter: 2022Q1

REPORT INFORMATION
  Report Type: Other
  Country: None (occurrence: US)
  Receive Date: 20220223
  Receipt Date: 20220223
  Transmission Date: 20220424
  Serious: Yes (Other)
  Sender: FDA-Public Use
  Company Number: US-NATCO Pharma Limited-2126171

PATIENT
  Age: 73 Year
  Sex: Female

DRUGS (1)
  1. ANASTROZOLE [Suspect]
     Active Substance: ANASTROZOLE

REACTIONS (4)
  - Cystoid macular oedema [None]
  - Uveitis [None]
  - Vitreoretinal traction syndrome [None]
  - Retinal vasculitis [None]
